FAERS Safety Report 6161290-0 (Version None)
Quarter: 2009Q2

REPORT INFORMATION
  Report Type: 
  Country: None (occurrence: None)
  Receive Date: 20090421
  Receipt Date: 20070515
  Transmission Date: 20091009
  Serious: Yes (Hospitalization, Other)
  Sender: FDA-Public Use
  Company Number: US-ASTRAZENECA-2006UW20960

PATIENT
  Age: 12660 Day
  Sex: Male
  Weight: 81.6 kg

DRUGS (20)
  1. SEROQUEL [Suspect]
     Indication: DEPRESSION
     Route: 048
     Dates: start: 20040101, end: 20050101
  2. SEROQUEL [Suspect]
     Indication: ANXIETY
     Route: 048
     Dates: start: 20040101, end: 20050101
  3. SEROQUEL [Suspect]
     Dosage: 150-200 MG
     Route: 048
  4. SEROQUEL [Suspect]
     Dosage: 150-200 MG
     Route: 048
  5. REMERON [Concomitant]
  6. ACTOS [Concomitant]
  7. HALDOL [Concomitant]
  8. ATIVAN [Concomitant]
  9. TRAZODONE HCL [Concomitant]
  10. LEXAPRO [Concomitant]
  11. BUSPAR [Concomitant]
  12. IBUPROFEN [Concomitant]
  13. ACETAMINOPHEN [Concomitant]
  14. NICOTINE [Concomitant]
  15. THIAMINE HCL [Concomitant]
  16. PANTOPRAZOLE SODIUM [Concomitant]
  17. CELEXA [Concomitant]
  18. FAMOTIDINE [Concomitant]
  19. CYANOCOBALAMIN [Concomitant]
  20. CAMPRAL [Concomitant]

REACTIONS (15)
  - ALCOHOLISM [None]
  - BORDERLINE PERSONALITY DISORDER [None]
  - DEPRESSION [None]
  - DRUG ABUSE [None]
  - DRUG DEPENDENCE [None]
  - FLIGHT OF IDEAS [None]
  - MAJOR DEPRESSION [None]
  - MIGRAINE [None]
  - NECK PAIN [None]
  - PANCREATITIS [None]
  - PRESSURE OF SPEECH [None]
  - PSYCHOTIC DISORDER [None]
  - SUBSTANCE ABUSE [None]
  - SUICIDAL IDEATION [None]
  - SUICIDE ATTEMPT [None]
